FAERS Safety Report 9439176 (Version 1)
Quarter: 2013Q3

REPORT INFORMATION
  Report Type: Spontaneous
  Country: ES (occurrence: ES)
  Receive Date: 20130802
  Receipt Date: 20130802
  Transmission Date: 20140515
  Serious: Yes (Hospitalization, Other)
  Sender: FDA-Public Use
  Company Number: ES-JNJFOC-20130715710

PATIENT
  Age: 39 Year
  Sex: Male

DRUGS (7)
  1. FENTANYL [Suspect]
     Indication: PAIN
     Route: 062
  2. HYDROMORPHONE [Suspect]
     Indication: PAIN
     Route: 048
  3. TRAMADOL [Suspect]
     Indication: ANALGESIC THERAPY
     Route: 065
  4. PARACETAMOL [Suspect]
     Route: 065
  5. PARACETAMOL [Suspect]
     Indication: ANALGESIC THERAPY
     Route: 065
  6. MORPHINE [Suspect]
     Indication: PAIN
     Route: 065
  7. ALPRAZOLAM [Suspect]
     Indication: PRODUCT USED FOR UNKNOWN INDICATION
     Dosage: 3,4 TABLETS OF ALPRAZOLAM 3 MG.
     Route: 065

REACTIONS (3)
  - Drug dependence [Unknown]
  - Respiratory depression [Unknown]
  - Renal failure [Unknown]
